FAERS Safety Report 6945516-9 (Version None)
Quarter: 2010Q3

REPORT INFORMATION
  Report Type: 
  Country: None (occurrence: None)
  Receive Date: 20100827
  Receipt Date: 20100820
  Transmission Date: 20110219
  Serious: Yes (Other)
  Sender: FDA-Public Use
  Company Number: CA-ROCHE-722658

PATIENT
  Sex: Female
  Weight: 51 kg

DRUGS (3)
  1. BEVACIZUMAB [Suspect]
     Indication: OLIGODENDROGLIOMA
     Route: 042
     Dates: start: 20100419
  2. TEGRETOL [Concomitant]
  3. CLONAZEPAM [Concomitant]

REACTIONS (1)
  - NEOPLASM RECURRENCE [None]
